FAERS Safety Report 5911413-0 (Version None)
Quarter: 2008Q4

REPORT INFORMATION
  Report Type: 
  Country: None (occurrence: None)
  Receive Date: 20081007
  Receipt Date: 20080925
  Transmission Date: 20090506
  Serious: Yes (Hospitalization)
  Sender: FDA-Public Use
  Company Number: NL-PFIZER INC-2006113244

PATIENT
  Sex: Male
  Weight: 74 kg

DRUGS (4)
  1. SU-011,248 [Suspect]
     Indication: METASTATIC RENAL CELL CARCINOMA
     Route: 048
     Dates: start: 20060905
  2. SU-011,248 [Suspect]
     Route: 048
     Dates: start: 20060920
  3. QUINAPRIL [Concomitant]
     Route: 048
     Dates: start: 20050322
  4. ACENOCOUMAROL [Concomitant]
     Route: 048
     Dates: start: 20051130

REACTIONS (2)
  - CONFUSIONAL STATE [None]
  - PYREXIA [None]
